FAERS Safety Report 18622209 (Version 1)
Quarter: 2020Q4

REPORT INFORMATION
  Report Type: Spontaneous
  Country: US (occurrence: US)
  Receive Date: 20201216
  Receipt Date: 20201216
  Transmission Date: 20210114
  Serious: Yes (Other)
  Sender: FDA-Public Use
  Company Number: US-TAKEDA-US202017584

PATIENT
  Age: 61 Year
  Sex: Male

DRUGS (8)
  1. GATTEX [Suspect]
     Active Substance: TEDUGLUTIDE\WATER
     Indication: ILEOSTOMY
     Dosage: 3.29 MILLIGRAM, 1X/DAY:QD
     Route: 058
     Dates: start: 20200415
  2. GATTEX [Suspect]
     Active Substance: TEDUGLUTIDE\WATER
     Indication: ILEOSTOMY
     Dosage: 3.29 MILLIGRAM, 1X/DAY:QD
     Route: 058
     Dates: start: 20200415
  3. GATTEX [Suspect]
     Active Substance: TEDUGLUTIDE\WATER
     Indication: ILEOSTOMY
     Dosage: 3.29 MILLIGRAM, 1X/DAY:QD
     Route: 058
     Dates: start: 20200415
  4. GATTEX [Suspect]
     Active Substance: TEDUGLUTIDE\WATER
     Indication: SHORT-BOWEL SYNDROME
     Dosage: 3.29 MILLIGRAM, 1X/DAY:QD
     Route: 058
     Dates: start: 20200416
  5. GATTEX [Suspect]
     Active Substance: TEDUGLUTIDE\WATER
     Indication: SHORT-BOWEL SYNDROME
     Dosage: 3.29 MILLIGRAM, 1X/DAY:QD
     Route: 058
     Dates: start: 20200416
  6. GATTEX [Suspect]
     Active Substance: TEDUGLUTIDE\WATER
     Indication: SHORT-BOWEL SYNDROME
     Dosage: 3.29 MILLIGRAM, 1X/DAY:QD
     Route: 058
     Dates: start: 20200416
  7. GATTEX [Suspect]
     Active Substance: TEDUGLUTIDE\WATER
     Indication: SHORT-BOWEL SYNDROME
     Dosage: 3.29 MILLIGRAM, 1X/DAY:QD
     Route: 058
     Dates: start: 20200416
  8. GATTEX [Suspect]
     Active Substance: TEDUGLUTIDE\WATER
     Indication: ILEOSTOMY
     Dosage: 3.29 MILLIGRAM, 1X/DAY:QD
     Route: 058
     Dates: start: 20200415

REACTIONS (5)
  - Product dose omission issue [Unknown]
  - Injection site dryness [Unknown]
  - Emergency care [Unknown]
  - Rash [Unknown]
  - Injection site rash [Unknown]

NARRATIVE: CASE EVENT DATE: 20200521
